FAERS Safety Report 4290413-3 (Version None)
Quarter: 2004Q1

REPORT INFORMATION
  Report Type: 
  Country: None (occurrence: None)
  Receive Date: 20040203
  Receipt Date: 20030113
  Transmission Date: 20041129
  Serious: Yes (Other)
  Sender: FDA-Public Use
  Company Number: 200310668BWH

PATIENT
  Age: 40 Year
  Sex: Female

DRUGS (3)
  1. AVELOX [Suspect]
     Indication: PHARYNGITIS STREPTOCOCCAL
     Dosage: 400 MG, QD, ORAL
     Route: 048
     Dates: start: 20021216
  2. AVELOX [Suspect]
     Indication: TONSILLITIS
     Dosage: 400 MG, QD, ORAL
     Route: 048
     Dates: start: 20021216
  3. SYNTHROID [Concomitant]

REACTIONS (5)
  - DIZZINESS [None]
  - HYPOAESTHESIA [None]
  - NAUSEA [None]
  - PARAESTHESIA [None]
  - VOMITING [None]
